FAERS Safety Report 9427532 (Version 1)
Quarter: 2013Q3

REPORT INFORMATION
  Report Type: Report from Study
  Country: US (occurrence: US)
  Receive Date: 20130730
  Receipt Date: 20130730
  Transmission Date: 20140515
  Serious: No
  Sender: FDA-Public Use
  Company Number: US-ABBOTT-12P-163-0967195-00

PATIENT
  Sex: Male
  Weight: 122.58 kg

DRUGS (6)
  1. NIASPAN (COATED) 500MG [Suspect]
     Indication: HIGH DENSITY LIPOPROTEIN DECREASED
     Dosage: 500 MG, AT BEDTIME
  2. NIASPAN (COATED) 500MG [Suspect]
     Indication: LOW DENSITY LIPOPROTEIN INCREASED
  3. NIASPAN (COATED) 500MG [Suspect]
     Dosage: 2000 MG, AT BED TIME
  4. LISINOPRIL HCTZ [Concomitant]
     Indication: PRODUCT USED FOR UNKNOWN INDICATION
  5. MVT WITH 25MG OF B3 [Concomitant]
     Indication: PRODUCT USED FOR UNKNOWN INDICATION
  6. CLARITIN [Concomitant]
     Indication: ALLERGIC SINUSITIS

REACTIONS (4)
  - Incorrect dose administered [Unknown]
  - Flushing [Recovering/Resolving]
  - Skin burning sensation [Recovering/Resolving]
  - Feeling hot [Recovering/Resolving]
